FAERS Safety Report 7827020-9 (Version None)
Quarter: 2011Q4

REPORT INFORMATION
  Report Type: 
  Country: None (occurrence: None)
  Receive Date: 20111018
  Receipt Date: 20111010
  Transmission Date: 20120403
  Serious: Yes (Other)
  Sender: FDA-Public Use
  Company Number: 2011MA012388

PATIENT
  Age: 47 Year
  Sex: Male

DRUGS (6)
  1. FLUOXETINE [Suspect]
     Indication: OBSESSIVE-COMPULSIVE DISORDER
     Dosage: 40 MG;QD
     Dates: start: 20090701
  2. HYDROBROMIDE [Concomitant]
  3. CLOZAPINE [Suspect]
     Indication: SCHIZOPHRENIA
     Dosage: 400 MG;QD;PO
     Route: 048
     Dates: start: 20090728
  4. CLOZAPINE [Suspect]
     Indication: OBSESSIVE-COMPULSIVE DISORDER
     Dosage: 400 MG;QD;PO
     Route: 048
     Dates: start: 20090728
  5. HYOSCINE [Concomitant]
  6. OMEPRAZOLE [Concomitant]

REACTIONS (9)
  - WEIGHT DECREASED [None]
  - BLOOD ALKALINE PHOSPHATASE INCREASED [None]
  - ABDOMINAL PAIN [None]
  - HYPERHIDROSIS [None]
  - DRUG INTERACTION [None]
  - LETHARGY [None]
  - DECREASED APPETITE [None]
  - DIARRHOEA [None]
  - COUGH [None]
